FAERS Safety Report 9493693 (Version 3)
Quarter: 2016Q2

REPORT INFORMATION
  Report Type: Report from Study
  Country: US (occurrence: US)
  Receive Date: 20130902
  Receipt Date: 20160520
  Transmission Date: 20160815
  Serious: Yes (Hospitalization)
  Sender: FDA-Public Use
  Company Number: US-ROCHE-1269033

PATIENT
  Sex: Male
  Weight: 59 kg

DRUGS (2)
  1. XOLAIR [Suspect]
     Active Substance: OMALIZUMAB
     Indication: ASTHMA
     Route: 058
  2. SINGULAIR [Concomitant]
     Active Substance: MONTELUKAST SODIUM

REACTIONS (6)
  - Pruritus [Unknown]
  - Headache [Unknown]
  - Anosmia [Unknown]
  - Asthma [Unknown]
  - Dysgeusia [Unknown]
  - Nasopharyngitis [Unknown]
